FAERS Safety Report 25956307 (Version 1)
Quarter: 2025Q4

REPORT INFORMATION
  Report Type: Spontaneous
  Country: US (occurrence: None)
  Receive Date: 20251023
  Receipt Date: 20251023
  Transmission Date: 20260118
  Serious: Yes (Hospitalization)
  Sender: FDA-CTU
  Company Number: None

PATIENT
  Sex: Male

DRUGS (9)
  1. LENALIDOMIDE [Suspect]
     Active Substance: LENALIDOMIDE
     Indication: Plasma cell myeloma
     Dosage: TAKE 1 CAPSULE (10 MG TOTAL) BY MOUTH 1 (ONE) TIME EACH DAY
     Route: 048
     Dates: start: 20250205
  2. ASCORBIC ACID [Concomitant]
     Active Substance: ASCORBIC ACID
     Dosage: TAKE 1 CAPSULE (10 MG TOTAL) BY MOUTH 1 (ONE) TIME EACH DAY
     Route: 048
     Dates: start: 20250205
  3. ASPIRIN [Concomitant]
     Active Substance: ASPIRIN
     Dosage: TAKE 1 CAPSULE (10 MG TOTAL) BY MOUTH 1 (ONE) TIME EACH DAY
     Route: 048
     Dates: start: 20250205
  4. VITAMIN D3 [Concomitant]
     Active Substance: CHOLECALCIFEROL
     Dosage: TAKE 1 CAPSULE (10 MG TOTAL) BY MOUTH 1 (ONE) TIME EACH DAY
     Route: 048
     Dates: start: 20250205
  5. FERROUS SULFATE [Concomitant]
     Active Substance: FERROUS SULFATE
     Dosage: TAKE 1 CAPSULE (10 MG TOTAL) BY MOUTH 1 (ONE) TIME EACH DAY
     Route: 048
     Dates: start: 20250205
  6. FISH OIL [Concomitant]
     Active Substance: FISH OIL
     Dosage: TAKE 1 CAPSULE (10 MG TOTAL) BY MOUTH 1 (ONE) TIME EACH DAY
     Route: 048
     Dates: start: 20250205
  7. LOPERMIDE [Concomitant]
     Dosage: TAKE 1 CAPSULE (10 MG TOTAL) BY MOUTH 1 (ONE) TIME EACH DAY
     Route: 048
     Dates: start: 20250205
  8. VITAMINS [Concomitant]
     Active Substance: VITAMINS
     Dosage: TAKE 1 CAPSULE (10 MG TOTAL) BY MOUTH 1 (ONE) TIME EACH DAY
     Route: 048
     Dates: start: 20250205
  9. VITAMIN B12 [Concomitant]
     Active Substance: CYANOCOBALAMIN
     Dosage: TAKE 1 CAPSULE (10 MG TOTAL) BY MOUTH 1 (ONE) TIME EACH DAY
     Route: 048
     Dates: start: 20250205

REACTIONS (3)
  - Therapy interrupted [None]
  - Cystitis [None]
  - Haematological infection [None]
